FAERS Safety Report 12160735 (Version 2)
Quarter: 2016Q1

REPORT INFORMATION
  Report Type: Report from Study
  Country: US (occurrence: US)
  Receive Date: 20160308
  Receipt Date: 20160309
  Transmission Date: 20160526
  Serious: Yes (Hospitalization, Other)
  Sender: FDA-Public Use
  Company Number: US-ABBVIE-16K-163-1571708-00

PATIENT
  Age: 59 Year
  Sex: Female
  Weight: 87.62 kg

DRUGS (1)
  1. HUMIRA [Suspect]
     Active Substance: ADALIMUMAB
     Indication: RHEUMATOID ARTHRITIS
     Route: 058
     Dates: start: 201404, end: 201602

REACTIONS (6)
  - Postoperative wound infection [Unknown]
  - Hysterectomy [Unknown]
  - Blood pressure decreased [Unknown]
  - Colon cancer [Unknown]
  - Ovarian cancer [Unknown]
  - Drug hypersensitivity [Unknown]

NARRATIVE: CASE EVENT DATE: 2015
